FAERS Safety Report 9449067 (Version 2)
Quarter: 2014Q1

REPORT INFORMATION
  Report Type: Spontaneous
  Country: US (occurrence: None)
  Receive Date: 20130806
  Receipt Date: 20140123
  Transmission Date: 20141002
  Serious: Yes (Congenital Anomaly)
  Sender: FDA-Public Use
  Company Number: SYM-2013-07459

PATIENT
  Age: 0 Day
  Sex: Male

DRUGS (1)
  1. WELLBUTRIN XL [Suspect]
     Indication: PRODUCT USED FOR UNKNOWN INDICATION
     Dosage: [10057097-DRUG USE FOR UNKNOWN INDICATION]
     Dates: start: 20071106

REACTIONS (3)
  - Hypoplastic left heart syndrome [None]
  - Maternal drugs affecting foetus [None]
  - Vocal cord paralysis [None]
